FAERS Safety Report 5214929-8 (Version None)
Quarter: 2007Q1

REPORT INFORMATION
  Report Type: 
  Country: None (occurrence: None)
  Receive Date: 20061108
  Receipt Date: 20051013
  Transmission Date: 20070707
  Serious: Yes (Other)
  Sender: FDA-Public Use
  Company Number: PHEH2005US11455

PATIENT
  Sex: Female

DRUGS (2)
  1. ESTROGEN (ESTROGENS) TRANS-THERAPEUTIC-SYSTEM [Suspect]
     Indication: HORMONE REPLACEMENT THERAPY
  2. PROGESTIN INJ [Suspect]
     Indication: HORMONE REPLACEMENT THERAPY

REACTIONS (6)
  - BREAST CANCER FEMALE [None]
  - CEREBROVASCULAR ACCIDENT [None]
  - EMBOLISM [None]
  - INJURY [None]
  - MYOCARDIAL INFARCTION [None]
  - THROMBOSIS [None]
